FAERS Safety Report 19011404 (Version 4)
Quarter: 2021Q2

REPORT INFORMATION
  Report Type: Report from Study
  Country: SI (occurrence: SI)
  Receive Date: 20210315
  Receipt Date: 20210602
  Transmission Date: 20210717
  Serious: Yes (Hospitalization)
  Sender: FDA-Public Use
  Company Number: SI-ROCHE-2786937

PATIENT
  Age: 22 Year
  Sex: Female
  Weight: 70 kg

DRUGS (20)
  1. CLEMASTINUM [Concomitant]
     Active Substance: CLEMASTINE FUMARATE
     Indication: PREMEDICATION
     Route: 042
     Dates: start: 20200901, end: 20200901
  2. PARACETAMOL [Concomitant]
     Active Substance: ACETAMINOPHEN
     Indication: PREMEDICATION
     Dosage: NEXT DOSE ON 05/NOV/2018, 18/APR/2019, 02/OCT/2019, 10/MAR/2020
     Route: 048
     Dates: start: 20210216, end: 20210216
  3. VENTOLIN [Concomitant]
     Active Substance: ALBUTEROL SULFATE
     Dates: start: 20200207, end: 20200210
  4. OCRELIZUMAB. [Suspect]
     Active Substance: OCRELIZUMAB
     Indication: RELAPSING-REMITTING MULTIPLE SCLEROSIS
     Dosage: DATE OF MOST RECENT DOSE OF OCRELIZUMAB PRIOR TO THIS EVENT ONSET: 01/SEP/2020?TWO 300?MILLIGRAM (MG
     Route: 042
     Dates: start: 20171120
  5. LEKADOL PLUS C [Concomitant]
     Active Substance: ACETAMINOPHEN\ASCORBIC ACID
     Route: 048
     Dates: start: 20190616, end: 20190617
  6. LEKADOL PLUS C [Concomitant]
     Active Substance: ACETAMINOPHEN\ASCORBIC ACID
     Route: 048
  7. CLEMASTIN [Concomitant]
     Active Substance: CLEMASTINE
     Dosage: NEXT DOSE ON 07/MAY/2018, 05/NOV/2018, 18/APR/2019, 02/OCT/2019, 10/MAR/2020
     Route: 042
     Dates: start: 20171204, end: 20171204
  8. TAVEGYL [Concomitant]
     Active Substance: CLEMASTINE FUMARATE
     Indication: PREMEDICATION
     Route: 042
     Dates: start: 20210216, end: 20210216
  9. PARACETAMOL [Concomitant]
     Active Substance: ACETAMINOPHEN
     Route: 048
  10. METHYLPREDNISOLONE. [Suspect]
     Active Substance: METHYLPREDNISOLONE
     Indication: PREMEDICATION
     Dosage: DATE OF MOST RECENT DOSE OF METHYLPREDNISOLONE PRIOR TO THIS EVENT ONSET: 01/SEP/2020 (100 MG)?NEXT
     Route: 042
     Dates: start: 20171120
  11. LEKADOL PLUS C [Concomitant]
     Active Substance: ACETAMINOPHEN\ASCORBIC ACID
     Route: 048
     Dates: start: 20200206, end: 20200209
  12. LEKADOL PLUS C [Concomitant]
     Active Substance: ACETAMINOPHEN\ASCORBIC ACID
     Route: 048
     Dates: start: 20191116, end: 20191119
  13. PARACETAMOL [Concomitant]
     Active Substance: ACETAMINOPHEN
     Route: 048
     Dates: start: 20181226, end: 20190102
  14. VENTOLIN [Concomitant]
     Active Substance: ALBUTEROL SULFATE
  15. CLEMASTIN [Concomitant]
     Active Substance: CLEMASTINE
     Indication: PREMEDICATION
     Dosage: 2 OTHER
     Route: 042
     Dates: start: 20171120, end: 20171120
  16. LEKADOL PLUS C [Concomitant]
     Active Substance: ACETAMINOPHEN\ASCORBIC ACID
     Route: 048
     Dates: start: 20190324, end: 20190328
  17. COMIRNATY [Concomitant]
     Active Substance: TOZINAMERAN
     Route: 030
     Dates: start: 20210505, end: 20210505
  18. KYLEENA [Concomitant]
     Active Substance: LEVONORGESTREL
  19. LEKADOL PLUS C [Concomitant]
     Active Substance: ACETAMINOPHEN\ASCORBIC ACID
     Route: 048
     Dates: start: 20191215, end: 20191217
  20. YARINA [Concomitant]
     Active Substance: DROSPIRENONE\ETHINYL ESTRADIOL
     Dosage: 0.03 MG/3 MG
     Route: 048

REACTIONS (1)
  - COVID-19 [Recovered/Resolved]

NARRATIVE: CASE EVENT DATE: 20201021
